FAERS Safety Report 4884129-X (Version None)
Quarter: 2005Q4

REPORT INFORMATION
  Report Type: 
  Country: None (occurrence: None)
  Receive Date: 20051201
  Receipt Date: 20050912
  Transmission Date: 20060501
  Serious: No
  Sender: FDA-Public Use
  Company Number: 2005PV001987

PATIENT
  Age: 53 Year
  Sex: Male
  Weight: 158.759 kg

DRUGS (7)
  1. BYETTA [Suspect]
     Indication: DIABETES MELLITUS NON-INSULIN-DEPENDENT
     Dosage: 5 MCG; BID; SC
     Route: 058
     Dates: start: 20050824
  2. GLUCOTROL XL [Concomitant]
  3. AVANDIA [Concomitant]
  4. FLOMAX [Concomitant]
  5. DRIXORAL [Concomitant]
  6. TYLENOL (CAPLET) [Concomitant]
  7. ADVIL [Concomitant]

REACTIONS (4)
  - ABDOMINAL DISTENSION [None]
  - DECREASED APPETITE [None]
  - THERAPEUTIC RESPONSE UNEXPECTED [None]
  - WEIGHT DECREASED [None]
